FAERS Safety Report 4736322-4 (Version None)
Quarter: 2005Q3

REPORT INFORMATION
  Report Type: 
  Country: None (occurrence: None)
  Receive Date: 20050802
  Receipt Date: 20050719
  Transmission Date: 20060218
  Serious: Yes (Hospitalization, Other)
  Sender: FDA-Public Use
  Company Number: 2005EU001634

PATIENT
  Age: 37 Year
  Sex: Female

DRUGS (14)
  1. FK506 (TACROLIMUS CAPSULES) [Suspect]
     Indication: PANCREAS TRANSPLANT
     Dosage: SEE IMAGE
     Route: 048
     Dates: start: 20050630, end: 20050121
  2. FK506 (TACROLIMUS CAPSULES) [Suspect]
     Indication: RENAL TRANSPLANT
     Dosage: SEE IMAGE
     Route: 048
     Dates: start: 20050630, end: 20050121
  3. FK506 (TACROLIMUS CAPSULES) [Suspect]
     Indication: PANCREAS TRANSPLANT
     Dosage: SEE IMAGE
     Route: 048
     Dates: start: 20040308, end: 20050629
  4. FK506 (TACROLIMUS CAPSULES) [Suspect]
     Indication: RENAL TRANSPLANT
     Dosage: SEE IMAGE
     Route: 048
     Dates: start: 20040308, end: 20050629
  5. RAPAMUNE [Suspect]
     Indication: PANCREAS TRANSPLANT
     Dosage: SEE IMAGE
     Route: 048
     Dates: end: 20050121
  6. RAPAMUNE [Suspect]
     Indication: RENAL TRANSPLANT
     Dosage: SEE IMAGE
     Route: 048
     Dates: end: 20050121
  7. RAPAMUNE [Suspect]
     Indication: PANCREAS TRANSPLANT
     Dosage: SEE IMAGE
     Route: 048
     Dates: start: 20040308
  8. RAPAMUNE [Suspect]
     Indication: RENAL TRANSPLANT
     Dosage: SEE IMAGE
     Route: 048
     Dates: start: 20040308
  9. ASPIRIN [Concomitant]
  10. ZOREM (AMLODIPINE BESILATE) [Concomitant]
  11. ROCALTROL [Concomitant]
  12. HELICID (OMEPRAZOLE) [Concomitant]
  13. SORBIFER DURULES (FERROUS SULFATE) [Concomitant]
  14. KETOSTERIL (AMINO ACIDS NOS) [Concomitant]

REACTIONS (4)
  - DIABETIC FOOT [None]
  - DIABETIC GANGRENE [None]
  - ENDOCARDITIS [None]
  - LEG AMPUTATION [None]
